FAERS Safety Report 9373750 (Version 5)
Quarter: 2014Q1

REPORT INFORMATION
  Report Type: Spontaneous
  Country: US (occurrence: US)
  Receive Date: 20130628
  Receipt Date: 20140128
  Transmission Date: 20141002
  Serious: Yes (Hospitalization, Other)
  Sender: FDA-Public Use
  Company Number: US-PFIZER INC-2013189043

PATIENT
  Age: 71 Year
  Sex: Female
  Weight: 80.27 kg

DRUGS (15)
  1. LYRICA [Suspect]
     Indication: PAIN
     Dosage: (ONE CAPSULE OF 25MG IN MORNING, ONE IN AFTERNOON AND TWO BEFORE BED TIME), 3X/DAY
     Dates: start: 2008
  2. LYRICA [Suspect]
     Indication: PAIN IN EXTREMITY
  3. PREMARIN [Suspect]
     Indication: BLADDER DISORDER
     Dosage: 2 G, WEEKLY
     Route: 067
  4. PREMARIN [Suspect]
     Indication: VAGINAL DISORDER
     Dosage: 2 G, 2X/WEEK
  5. BACLOFEN [Concomitant]
     Indication: MUSCLE RELAXANT THERAPY
     Dosage: 10MG DAILY PRN
  6. TRAMADOL [Concomitant]
     Indication: PAIN
     Dosage: 100 MG, 4X/DAY
  7. TRAMADOL [Concomitant]
     Dosage: 50 MG, 1X/DAY
  8. TRAMADOL [Concomitant]
     Dosage: 1-2 TABS
  9. ENABLEX [Concomitant]
     Dosage: 7.5 MG, UNK
  10. LESCOL [Concomitant]
     Dosage: 80 MG, DAILY
  11. PREMARIN [Concomitant]
     Dosage: 2 MG/INJ
  12. PREMARIN [Concomitant]
     Dosage: 25 MG, INJ WKLY
  13. VESICARE [Concomitant]
     Dosage: 5 MG, DAILY
  14. VITAMIN D [Concomitant]
     Dosage: 5000 U, DAILY
  15. UROCIT-K [Concomitant]
     Dosage: UNK, 2X/DAY

REACTIONS (1)
  - Nephrolithiasis [Unknown]
